FAERS Safety Report 10100435 (Version 1)
Quarter: 2014Q2

REPORT INFORMATION
  Report Type: Spontaneous
  Country: FR (occurrence: FR)
  Receive Date: 20140423
  Receipt Date: 20140423
  Transmission Date: 20141212
  Serious: Yes (Other)
  Sender: FDA-Public Use
  Company Number: FR-ASTRAZENECA-2014SE27271

PATIENT
  Age: 53 Year
  Sex: Female

DRUGS (11)
  1. XEROQUEL [Suspect]
     Indication: BIPOLAR DISORDER
     Route: 048
     Dates: start: 20140303, end: 20140303
  2. XEROQUEL [Suspect]
     Indication: BIPOLAR DISORDER
     Route: 048
     Dates: start: 20140304, end: 201403
  3. XEROQUEL [Suspect]
     Indication: BIPOLAR DISORDER
     Route: 048
     Dates: start: 201403, end: 20140309
  4. XEROQUEL [Suspect]
     Indication: BIPOLAR DISORDER
     Route: 048
     Dates: start: 20140310, end: 201403
  5. XEROQUEL [Suspect]
     Indication: BIPOLAR DISORDER
     Route: 048
     Dates: start: 201403, end: 20140313
  6. UNSPECIFIED CORTICOID DRUGS [Suspect]
     Indication: LUNG DISORDER
     Route: 048
     Dates: start: 201403, end: 201403
  7. TERCIAN [Concomitant]
     Route: 048
     Dates: start: 20140303, end: 20140304
  8. TERCIAN [Concomitant]
     Route: 048
     Dates: start: 20140313
  9. DEPAKOTE [Concomitant]
     Route: 048
     Dates: start: 20140303, end: 20140304
  10. DEPAKOTE [Concomitant]
     Route: 048
     Dates: start: 20140304, end: 20140310
  11. DEPAKOTE [Concomitant]
     Route: 048
     Dates: start: 20140313

REACTIONS (4)
  - Lung disorder [Unknown]
  - Muscular weakness [Recovered/Resolved]
  - Balance disorder [Recovered/Resolved]
  - Sedation [Unknown]
